FAERS Safety Report 9980931 (Version 1)
Quarter: 2014Q1

REPORT INFORMATION
  Report Type: Spontaneous
  Country: US (occurrence: US)
  Receive Date: 20140307
  Receipt Date: 20140307
  Transmission Date: 20141002
  Serious: No
  Sender: FDA-Public Use
  Company Number: US-PFIZER INC-2014065641

PATIENT
  Sex: Female

DRUGS (12)
  1. ZOLOFT [Suspect]
     Dosage: UNK
  2. GLIPIZIDE [Suspect]
     Dosage: UNK
  3. PLAQUENIL [Suspect]
     Dosage: UNK
  4. REQUIP [Suspect]
     Dosage: UNK
  5. NEXIUM [Suspect]
     Dosage: UNK
  6. LISINOPRIL W/HYDROCHLOROTHIAZIDE [Suspect]
     Dosage: UNK
  7. LORTAB [Suspect]
     Dosage: UNK
  8. CYMBALTA [Suspect]
     Dosage: UNK
  9. NAPROSYN [Suspect]
     Dosage: UNK
  10. ULTRAM [Suspect]
     Dosage: UNK
  11. K+CL [Suspect]
     Dosage: UNK
  12. METFORMIN [Suspect]
     Dosage: UNK

REACTIONS (1)
  - Drug hypersensitivity [Unknown]
